FAERS Safety Report 7209470-7 (Version None)
Quarter: 2010Q4

REPORT INFORMATION
  Report Type: 
  Country: None (occurrence: None)
  Receive Date: 20101222
  Receipt Date: 20101209
  Transmission Date: 20110411
  Serious: Yes (Hospitalization)
  Sender: FDA-Public Use
  Company Number: 2010004906

PATIENT
  Age: 55 Year
  Sex: Female

DRUGS (4)
  1. TARCEVA [Suspect]
     Indication: LUNG ADENOCARCINOMA
     Dosage: 150 MG, QD), ORAL
     Route: 048
     Dates: start: 20100916
  2. LOXONIN (LOXOPROFEN SODIUM) [Concomitant]
  3. FAMOTIDINE [Concomitant]
  4. DECADRON [Concomitant]

REACTIONS (6)
  - ALANINE AMINOTRANSFERASE INCREASED [None]
  - CYST [None]
  - HENOCH-SCHONLEIN PURPURA [None]
  - HEPATIC FUNCTION ABNORMAL [None]
  - PARONYCHIA [None]
  - RASH [None]
